FAERS Safety Report 4674616-1 (Version None)
Quarter: 2005Q2

REPORT INFORMATION
  Report Type: 
  Country: None (occurrence: None)
  Receive Date: 20050526
  Receipt Date: 20050517
  Transmission Date: 20051028
  Serious: Yes (Hospitalization)
  Sender: FDA-Public Use
  Company Number: US-GLAXOSMITHKLINE-A0559135A

PATIENT
  Age: 66 Year
  Sex: Female
  Weight: 45 kg

DRUGS (5)
  1. TUMS E-X TABLETS, FRESH BLEND [Suspect]
     Route: 048
     Dates: start: 19950101, end: 20050501
  2. SYNTHROID [Concomitant]
     Indication: HYPOTHYROIDISM
     Route: 048
  3. WELLBUTRIN XL [Concomitant]
     Indication: DEPRESSION
     Route: 048
  4. HYOSCYAMINE [Concomitant]
     Route: 060
  5. ENZYMES [Concomitant]

REACTIONS (11)
  - ABASIA [None]
  - ASTHENIA [None]
  - CHEST PAIN [None]
  - DIZZINESS [None]
  - DYSGEUSIA [None]
  - OVERDOSE [None]
  - PAIN [None]
  - RECTAL PROLAPSE [None]
  - RENAL FAILURE ACUTE [None]
  - TREMOR [None]
  - WEIGHT DECREASED [None]
